APPROVED DRUG PRODUCT: PRAVACHOL
Active Ingredient: PRAVASTATIN SODIUM
Strength: 10MG **Federal Register determination that product was not discontinued or withdrawn for safety or effectiveness reasons**
Dosage Form/Route: TABLET;ORAL
Application: N019898 | Product #002
Applicant: BRISTOL MYERS SQUIBB
Approved: Oct 31, 1991 | RLD: Yes | RS: No | Type: DISCN